FAERS Safety Report 4485137-3 (Version None)
Quarter: 2004Q4

REPORT INFORMATION
  Report Type: 
  Country: None (occurrence: None)
  Receive Date: 20041026
  Receipt Date: 20031118
  Transmission Date: 20050328
  Serious: No
  Sender: FDA-Public Use
  Company Number: US-BRISTOL-MYERS SQUIBB COMPANY-12438826

PATIENT
  Age: 70 Year
  Sex: Female
  Weight: 83 kg

DRUGS (6)
  1. GLUCOPHAGE XR [Suspect]
     Indication: DIABETES MELLITUS
     Route: 048
  2. ALTACE [Concomitant]
  3. ZANTAC [Concomitant]
  4. CELEBREX [Concomitant]
  5. MEVACOR [Concomitant]
  6. CELEXA [Concomitant]

REACTIONS (1)
  - DIZZINESS [None]
